FAERS Safety Report 14512100 (Version 2)
Quarter: 2018Q1

REPORT INFORMATION
  Report Type: Spontaneous
  Country: CN (occurrence: CN)
  Receive Date: 20180209
  Receipt Date: 20180326
  Transmission Date: 20180509
  Serious: Yes (Other)
  Sender: FDA-Public Use
  Company Number: CN-PFIZER INC-2018055634

PATIENT
  Age: 3 Year
  Sex: Male

DRUGS (1)
  1. METHOTREXATE SODIUM. [Suspect]
     Active Substance: METHOTREXATE SODIUM
     Indication: ACUTE LYMPHOCYTIC LEUKAEMIA
     Dosage: UNK (3-5 G/M2: 1/10 TOTAL DOSE NO MORE THAN 0.5G WITHIN 0.5 HOURS, REMAINING DOSE OVER 23.5 HOURS)
     Route: 042

REACTIONS (4)
  - Epilepsy [Recovered/Resolved]
  - Posterior reversible encephalopathy syndrome [Recovered/Resolved]
  - Electrolyte imbalance [Recovered/Resolved]
  - Secondary hypertension [Recovered/Resolved]
